FAERS Safety Report 6044715-0 (Version None)
Quarter: 2009Q1

REPORT INFORMATION
  Report Type: 
  Country: None (occurrence: None)
  Receive Date: 20090120
  Receipt Date: 20090114
  Transmission Date: 20090719
  Serious: No
  Sender: FDA-Public Use
  Company Number: ZW-B.I. PHARMACEUTICALS,INC./RIDGEFIELD-2009-BP-00502BP

PATIENT
  Age: 57 Year
  Sex: Male
  Weight: 75 kg

DRUGS (6)
  1. VIRAMUNE [Suspect]
     Indication: HIV INFECTION
     Dates: start: 20060801
  2. STAVUDINE [Suspect]
     Indication: HIV INFECTION
     Dates: start: 20060801, end: 20070501
  3. HYDROCHLOROTHIAZIDE [Concomitant]
     Indication: HYPERTENSION
     Dates: start: 19870101
  4. BRENEDIN [Concomitant]
     Indication: HYPERTENSION
  5. LAMIVUDINE [Concomitant]
     Indication: HIV INFECTION
     Dates: start: 20060801
  6. ZIDOVUDINE [Concomitant]
     Indication: HIV INFECTION
     Dates: start: 20070501

REACTIONS (2)
  - NEUROPATHY PERIPHERAL [None]
  - OEDEMA PERIPHERAL [None]
